FAERS Safety Report 8432757-7 (Version None)
Quarter: 2012Q2

REPORT INFORMATION
  Report Type: 
  Country: None (occurrence: None)
  Receive Date: 20120606
  Receipt Date: 20120521
  Transmission Date: 20120825
  Serious: Yes (Hospitalization)
  Sender: FDA-Public Use
  Company Number: FK201201474

PATIENT
  Age: 53 Year
  Sex: Female

DRUGS (2)
  1. CISPLATIN [Suspect]
     Indication: ADENOCARCINOMA
  2. DOCETAXEL (PEMETREXED) [Concomitant]

REACTIONS (5)
  - SEPSIS [None]
  - CARDIAC ARREST [None]
  - EMBOLISM ARTERIAL [None]
  - AORTIC OCCLUSION [None]
  - PERIPHERAL ISCHAEMIA [None]
